FAERS Safety Report 6669249-1 (Version None)
Quarter: 2010Q2

REPORT INFORMATION
  Report Type: 
  Country: None (occurrence: None)
  Receive Date: 20100406
  Receipt Date: 20100331
  Transmission Date: 20101027
  Serious: Yes (Life-Threatening, Hospitalization)
  Sender: FDA-Public Use
  Company Number: FR-BRISTOL-MYERS SQUIBB COMPANY-15044969

PATIENT
  Age: 22 Year
  Sex: Male

DRUGS (4)
  1. ETOPOPHOS FOR INJ 100 MG [Suspect]
     Indication: B-CELL LYMPHOMA
     Route: 042
     Dates: start: 20091203
  2. HOLOXAN [Suspect]
     Dates: start: 20091203
  3. UROMITEXAN [Suspect]
     Dates: start: 20091203
  4. ZOPHREN [Suspect]
     Indication: VOMITING
     Route: 042
     Dates: start: 20091203, end: 20091206

REACTIONS (3)
  - ERYTHEMA [None]
  - HYPERHIDROSIS [None]
  - RESPIRATORY DISTRESS [None]
